FAERS Safety Report 4725886-2 (Version None)
Quarter: 2005Q3

REPORT INFORMATION
  Report Type: 
  Country: None (occurrence: None)
  Receive Date: 20050722
  Receipt Date: 20050722
  Transmission Date: 20060218
  Serious: No
  Sender: FDA-Public Use
  Company Number: None

PATIENT

DRUGS (3)
  1. ARTICAINE HYDROCHLORIDE 4% [Suspect]
     Indication: NERVE BLOCK
     Dosage: LOCAL ANESTHETIC
  2. CITANOST FORTE [Concomitant]
  3. SEPTOCAINE [Concomitant]

REACTIONS (4)
  - DRUG TOXICITY [None]
  - GINGIVAL DISORDER [None]
  - HYPOAESTHESIA ORAL [None]
  - NEUROTOXICITY [None]
